FAERS Safety Report 5549294-X (Version None)
Quarter: 2007Q4

REPORT INFORMATION
  Report Type: 
  Country: None (occurrence: None)
  Receive Date: 20071211
  Receipt Date: 20071203
  Transmission Date: 20080405
  Serious: Yes (Other)
  Sender: FDA-Public Use
  Company Number: US-ELI_LILLY_AND_COMPANY-US200712000382

PATIENT
  Sex: Female

DRUGS (2)
  1. HUMALOG [Suspect]
     Dosage: UNK, UNK
     Dates: start: 20071001
  2. PREDNISONE [Concomitant]

REACTIONS (3)
  - BLOOD GLUCOSE INCREASED [None]
  - LUNG NEOPLASM [None]
  - RENAL CELL CARCINOMA STAGE UNSPECIFIED [None]
